FAERS Safety Report 14363666 (Version 3)
Quarter: 2018Q1

REPORT INFORMATION
  Report Type: Report from Study
  Country: JP (occurrence: JP)
  Receive Date: 20180108
  Receipt Date: 20180202
  Transmission Date: 20180509
  Serious: Yes (Hospitalization)
  Sender: FDA-Public Use
  Company Number: JP-CELGENEUS-JPN-20171205924

PATIENT
  Age: 82 Year
  Sex: Female
  Weight: 49.1 kg

DRUGS (48)
  1. ABRAXANE [Suspect]
     Active Substance: PACLITAXEL
     Dosage: 75 MILLIGRAM/SQ. METER
     Route: 041
     Dates: start: 20171107
  2. TEPRENONE [Concomitant]
     Active Substance: TEPRENONE
     Indication: CHRONIC GASTRITIS
     Route: 065
  3. URSODEOXYCHOLIC ACID [Concomitant]
     Active Substance: URSODIOL
     Dosage: 100 MILLIGRAM
     Route: 048
     Dates: start: 20180111, end: 20180118
  4. HEPARIN SODIUM. [Concomitant]
     Active Substance: HEPARIN SODIUM
     Indication: PRODUCT USED FOR UNKNOWN INDICATION
     Route: 065
     Dates: start: 20171207
  5. HEPARINOID [Concomitant]
     Active Substance: CHONDROITIN SULFATE (BOVINE)
     Indication: PARONYCHIA
     Route: 065
     Dates: start: 20171211
  6. RINDERON VG [Concomitant]
     Active Substance: BETAMETHASONE VALERATE\GENTAMICIN SULFATE
     Indication: PARONYCHIA
     Route: 065
     Dates: start: 20171212
  7. ABRAXANE [Suspect]
     Active Substance: PACLITAXEL
     Indication: BREAST CANCER METASTATIC
     Dosage: 100 MILLIGRAM/SQ. METER
     Route: 041
     Dates: start: 20170502
  8. PRANOPROFEN [Concomitant]
     Active Substance: PRANOPROFEN
     Indication: CONJUNCTIVITIS
     Dosage: .1 PERCENT
     Route: 047
  9. URSODEOXYCHOLIC ACID [Concomitant]
     Active Substance: URSODIOL
     Indication: CHOLELITHIASIS
     Dosage: 100 MILLIGRAM
     Route: 048
     Dates: end: 20180111
  10. MUCOPOLYSACCHARIDE POLYSULFURIC ACID ESTER [Concomitant]
     Dosage: .3 PERCENT
     Route: 065
     Dates: start: 20171208
  11. PENTAZOCINE [Concomitant]
     Active Substance: PENTAZOCINE
     Indication: BILE DUCT STONE
     Route: 065
     Dates: start: 20180118, end: 20180118
  12. ABRAXANE [Suspect]
     Active Substance: PACLITAXEL
     Dosage: 75 MILLIGRAM/SQ. METER
     Route: 041
     Dates: start: 20170530
  13. AMLODIPINE [Concomitant]
     Active Substance: AMLODIPINE BESYLATE
     Indication: HYPERTENSION
     Route: 065
  14. PL [Concomitant]
     Active Substance: ACETAMINOPHEN\CAFFEINE\PROMETHAZINE\SALICYLAMIDE
     Indication: BRONCHITIS CHRONIC
     Route: 065
  15. AZITHROMYCIN ANHYDROUS. [Concomitant]
     Active Substance: AZITHROMYCIN ANHYDROUS
     Indication: BRONCHITIS CHRONIC
     Route: 065
  16. KETOPROFEN. [Concomitant]
     Active Substance: KETOPROFEN
     Indication: OSTEOARTHRITIS
     Dosage: 40 MILLIGRAM
     Route: 065
     Dates: start: 20170629
  17. MINODRONIC ACID [Concomitant]
     Active Substance: MINODRONIC ACID
     Indication: OSTEOPOROSIS
     Route: 065
  18. SODIUM GUALENATE [Concomitant]
     Active Substance: SODIUM GUALENATE
     Indication: SKIN EXFOLIATION
     Route: 065
     Dates: start: 20180118
  19. WHITE PETROLATUM [Concomitant]
     Active Substance: PETROLATUM
     Indication: PROPHYLAXIS
     Route: 065
     Dates: start: 20171216
  20. PICILLIBACTA [Concomitant]
     Active Substance: AMPICILLIN SODIUM\SULBACTAM SODIUM
     Indication: PROPHYLAXIS
     Route: 065
     Dates: start: 20180118
  21. ELENTAL [Concomitant]
     Active Substance: AMINO ACIDS\CARBOHYDRATES\MINERALS\SOYBEAN OIL\VITAMINS
     Indication: PRODUCT USED FOR UNKNOWN INDICATION
     Route: 065
  22. ATEZOLIZUMAB. [Suspect]
     Active Substance: ATEZOLIZUMAB
     Dosage: 840 MILLIGRAM
     Route: 041
     Dates: start: 20171114
  23. FLUITRAN [Suspect]
     Active Substance: TRICHLORMETHIAZIDE
     Indication: HYPERTENSION
     Route: 065
     Dates: end: 20171202
  24. RABEPRAZOLE SODIUM. [Concomitant]
     Active Substance: RABEPRAZOLE SODIUM
     Indication: CHRONIC GASTRITIS
     Route: 065
  25. CANDESARTAN CILEXETIL. [Concomitant]
     Active Substance: CANDESARTAN CILEXETIL
     Indication: HYPERTENSION
     Route: 065
  26. POVIDONE-IODINE. [Concomitant]
     Active Substance: POVIDONE-IODINE
     Indication: STOMATITIS
     Dosage: 7 PERCENT
     Route: 065
  27. KETOPROFEN. [Concomitant]
     Active Substance: KETOPROFEN
     Dosage: 30 MILLIGRAM
     Route: 065
     Dates: start: 20170629
  28. HEPARIN SODIUM. [Concomitant]
     Active Substance: HEPARIN SODIUM
     Indication: PULMONARY EMBOLISM
  29. LOXOPROFEN SODIUM [Concomitant]
     Active Substance: LOXOPROFEN SODIUM
     Indication: BILE DUCT STONE
     Route: 048
     Dates: start: 20180122
  30. CEFMETAZOLE [Concomitant]
     Active Substance: CEFMETAZOLE
     Indication: PROPHYLAXIS
     Route: 065
     Dates: start: 20180118, end: 20180118
  31. BEZAFIBRATE [Concomitant]
     Active Substance: BEZAFIBRATE
     Indication: HYPERLIPIDAEMIA
     Dosage: 200 MILLIGRAM
     Route: 065
  32. ULTIBRO [Concomitant]
     Active Substance: GLYCOPYRRONIUM\INDACATEROL
     Indication: ASTHMA
     Route: 065
  33. URSODEOXYCHOLIC ACID [Concomitant]
     Active Substance: URSODIOL
     Dosage: 100 MILLIGRAM
     Route: 048
     Dates: start: 20180119
  34. LEVOTHYROXINE SODIUM. [Concomitant]
     Active Substance: LEVOTHYROXINE SODIUM
     Indication: HYPOTHYROIDISM
     Route: 065
     Dates: start: 20171107
  35. MUCOPOLYSACCHARIDE POLYSULFURIC ACID ESTER [Concomitant]
     Indication: PARONYCHIA
     Dosage: .3 PERCENT
     Route: 065
     Dates: start: 20171107
  36. CEFAZOLIN SODIUM. [Concomitant]
     Active Substance: CEFAZOLIN SODIUM
     Indication: PROPHYLAXIS
     Route: 065
     Dates: start: 20171211
  37. SOLDEM [Concomitant]
     Active Substance: DEXTROSE\POTASSIUM CHLORIDE\SODIUM CHLORIDE\SODIUM LACTATE
     Indication: PRODUCT USED FOR UNKNOWN INDICATION
     Route: 065
     Dates: start: 20180118
  38. MIDAZOLAM [Concomitant]
     Active Substance: MIDAZOLAM HYDROCHLORIDE
     Indication: BILE DUCT STONE
     Dosage: 10 MILLIGRAM
     Route: 065
     Dates: start: 20180118, end: 20180118
  39. WARFARIN [Concomitant]
     Active Substance: WARFARIN
     Indication: PULMONARY EMBOLISM
     Route: 065
     Dates: start: 20171206
  40. WARFARIN [Concomitant]
     Active Substance: WARFARIN
     Route: 065
     Dates: start: 20171212
  41. KETOPROFEN. [Concomitant]
     Active Substance: KETOPROFEN
     Indication: SPINAL OSTEOARTHRITIS
     Dosage: 20 MILLIGRAM
     Route: 065
  42. GENTAMICIN SULFATE. [Concomitant]
     Active Substance: GENTAMICIN SULFATE
     Indication: PARONYCHIA
     Dosage: .1 PERCENT
     Route: 065
     Dates: start: 20170817
  43. SITAFLOXACIN [Concomitant]
     Active Substance: SITAFLOXACIN
     Indication: BRONCHITIS CHRONIC
     Route: 065
  44. ACELIO [Concomitant]
     Active Substance: ACETAMINOPHEN
     Indication: BILE DUCT STONE
     Dosage: 1000 MILLIGRAM
     Route: 065
     Dates: start: 20180119, end: 20180120
  45. ATEZOLIZUMAB. [Suspect]
     Active Substance: ATEZOLIZUMAB
     Indication: BREAST CANCER METASTATIC
     Route: 041
     Dates: start: 20170502
  46. ATEZOLIZUMAB. [Suspect]
     Active Substance: ATEZOLIZUMAB
     Dosage: 840 MILLIGRAM
     Route: 041
     Dates: start: 20171226
  47. SOLACET F [Concomitant]
     Indication: PRODUCT USED FOR UNKNOWN INDICATION
     Route: 065
     Dates: start: 20171211, end: 20171211
  48. OMEPRAZOLE. [Concomitant]
     Active Substance: OMEPRAZOLE
     Indication: BILE DUCT STONE
     Route: 065
     Dates: start: 20180118, end: 20180121

REACTIONS (3)
  - Inappropriate antidiuretic hormone secretion [Recovered/Resolved]
  - Spinal cord compression [Not Recovered/Not Resolved]
  - Dehydration [Recovered/Resolved]

NARRATIVE: CASE EVENT DATE: 20171128
